FAERS Safety Report 13112768 (Version 2)
Quarter: 2017Q1

REPORT INFORMATION
  Report Type: Report from Study
  Country: US (occurrence: US)
  Receive Date: 20170113
  Receipt Date: 20170210
  Transmission Date: 20170428
  Serious: Yes (Death, Hospitalization, Other)
  Sender: FDA-Public Use
  Company Number: US-AMGEN-USASL2017003878

PATIENT
  Age: 80 Year
  Sex: Female
  Weight: 48.53 kg

DRUGS (16)
  1. SENNA [Concomitant]
     Active Substance: SENNA LEAF\SENNOSIDES\SENNOSIDES A AND B
     Dosage: 1 DF, BID
  2. ASPIRIN. [Concomitant]
     Active Substance: ASPIRIN
     Dosage: UNK
  3. OXYBUTYNIN [Concomitant]
     Active Substance: OXYBUTYNIN
     Dosage: UNK
  4. AMIODARONE [Concomitant]
     Active Substance: AMIODARONE
     Dosage: 200 MG, QD
     Route: 048
  5. PROLIA [Suspect]
     Active Substance: DENOSUMAB
     Indication: OSTEOPOROSIS POSTMENOPAUSAL
     Dosage: UNK
     Route: 065
  6. METOPROLOL. [Concomitant]
     Active Substance: METOPROLOL
     Dosage: 12.5 MG, QD
  7. DOCUSATE [Concomitant]
     Active Substance: DOCUSATE
     Dosage: 100 MG, BID
  8. CARDIZEM [Concomitant]
     Active Substance: DILTIAZEM HYDROCHLORIDE
     Indication: ATRIAL FIBRILLATION
     Dosage: UNK
  9. POLYETHYLENE GLYCOL [Concomitant]
     Active Substance: POLYETHYLENE GLYCOLS
     Dosage: 1 PACKET AS NEEDED, QD
  10. NITROGLYCERINE [Concomitant]
     Active Substance: NITROGLYCERIN
     Dosage: UNK
  11. LEVOTHYROXINE. [Concomitant]
     Active Substance: LEVOTHYROXINE
     Dosage: UNK
  12. TRAMADOL. [Concomitant]
     Active Substance: TRAMADOL
     Dosage: 50 MG, Q4H, PRN
  13. SIMVASTATIN. [Concomitant]
     Active Substance: SIMVASTATIN
     Dosage: UNK
  14. ACETAMINOPHEN. [Concomitant]
     Active Substance: ACETAMINOPHEN
     Dosage: 650 MG, Q4H PRN
  15. OMEPRAZOLE. [Concomitant]
     Active Substance: OMEPRAZOLE
     Dosage: 20 MG, QD
  16. MIRTAZAPINE. [Concomitant]
     Active Substance: MIRTAZAPINE
     Dosage: 50 MG, QD (NIGHTLY)

REACTIONS (32)
  - Cardiac failure congestive [Unknown]
  - Cardiomyopathy [Unknown]
  - Pulmonary oedema [Unknown]
  - Atrial flutter [Unknown]
  - Spinal column injury [Unknown]
  - Hypocalcaemia [Unknown]
  - Fall [Unknown]
  - Left ventricular hypertrophy [Unknown]
  - Loss of consciousness [Unknown]
  - Aortic stenosis [Unknown]
  - Lactic acidosis [Unknown]
  - Leukocytosis [Unknown]
  - Pleural effusion [Unknown]
  - Sternotomy [Unknown]
  - Heart rate increased [Recovering/Resolving]
  - Hypomagnesaemia [Unknown]
  - Electrolyte imbalance [Unknown]
  - Metabolic acidosis [Unknown]
  - Head injury [Unknown]
  - Atrial fibrillation [Unknown]
  - Cardio-respiratory arrest [Unknown]
  - Cardiomegaly [Unknown]
  - Pulse absent [Unknown]
  - Pulmonary oedema [Fatal]
  - Chronic left ventricular failure [Fatal]
  - Dyspnoea [Unknown]
  - Catheterisation cardiac [Unknown]
  - Unresponsive to stimuli [Unknown]
  - Bradycardia [Unknown]
  - Arteriosclerosis coronary artery [Unknown]
  - Wound haemorrhage [Unknown]
  - Intestinal fibrosis [Unknown]

NARRATIVE: CASE EVENT DATE: 201410
